FAERS Safety Report 4628103-7 (Version None)
Quarter: 2005Q2

REPORT INFORMATION
  Report Type: 
  Country: None (occurrence: None)
  Receive Date: 20050406
  Receipt Date: 20050330
  Transmission Date: 20051028
  Serious: Yes (Other)
  Sender: FDA-Public Use
  Company Number: US-GLAXOSMITHKLINE-A0551946A

PATIENT
  Age: 21 Year
  Sex: Male

DRUGS (2)
  1. WELLBUTRIN [Suspect]
     Dosage: 300MG PER DAY
     Route: 048
     Dates: start: 20050101
  2. NO CONCURRENT MEDICATION [Concomitant]

REACTIONS (4)
  - BITE [None]
  - MOUTH INJURY [None]
  - ORAL PAIN [None]
  - TOURETTE'S DISORDER [None]
